FAERS Safety Report 17876300 (Version 1)
Quarter: 2020Q2

REPORT INFORMATION
  Report Type: Spontaneous
  Country: US (occurrence: US)
  Receive Date: 20200609
  Receipt Date: 20200609
  Transmission Date: 20200714
  Serious: Yes (Other)
  Sender: FDA-Public Use
  Company Number: None

PATIENT
  Age: 72 Year
  Sex: Male
  Weight: 64 kg

DRUGS (1)
  1. REMDESIVIR. [Suspect]
     Active Substance: REMDESIVIR
     Indication: COVID-19
     Route: 042
     Dates: start: 20200602, end: 20200606

REACTIONS (4)
  - Incorrect dose administered [None]
  - Product dispensing error [None]
  - Drug monitoring procedure incorrectly performed [None]
  - Product preparation error [None]

NARRATIVE: CASE EVENT DATE: 20200602
